FAERS Safety Report 8455163-8 (Version None)
Quarter: 2012Q2

REPORT INFORMATION
  Report Type: 
  Country: None (occurrence: None)
  Receive Date: 20120621
  Receipt Date: 20120611
  Transmission Date: 20120825
  Serious: Yes (Hospitalization)
  Sender: FDA-Public Use
  Company Number: ES-SANOFI-AVENTIS-2012SA041776

PATIENT
  Age: 51 Year
  Sex: Male

DRUGS (2)
  1. CHLOROQUINE PHOSPHATE [Suspect]
     Indication: RHEUMATOID ARTHRITIS
     Dosage: RESOCHIN 50 COMPRIMIDOS
     Route: 065
     Dates: start: 20120101
  2. ARAVA [Suspect]
     Indication: RHEUMATOID ARTHRITIS
     Dosage: ARAVA 10 MG 30 COMPRIMIDOS CUBIERTA PELICULAR
     Route: 065
     Dates: start: 20120101

REACTIONS (3)
  - SEPTIC SHOCK [None]
  - PNEUMONIA [None]
  - MULTI-ORGAN FAILURE [None]
